FAERS Safety Report 9304786 (Version 1)
Quarter: 2013Q2

REPORT INFORMATION
  Report Type: Spontaneous
  Country: US (occurrence: US)
  Receive Date: 20130523
  Receipt Date: 20130523
  Transmission Date: 20140414
  Serious: No
  Sender: FDA-Public Use
  Company Number: US-009507513-1305USA010445

PATIENT
  Sex: Female

DRUGS (11)
  1. SINGULAIR [Suspect]
     Route: 048
  2. ZYPREXA [Suspect]
  3. ZANAFLEX [Suspect]
  4. TOPAMAX [Suspect]
  5. TEQUIN [Suspect]
  6. DYNABAC [Suspect]
  7. CRESTOR [Suspect]
  8. AUGMENTIN [Suspect]
  9. DEPAKOTE [Suspect]
  10. LIPITOR [Suspect]
  11. PREVACID [Suspect]

REACTIONS (1)
  - Drug hypersensitivity [Unknown]
